FAERS Safety Report 20694182 (Version 3)
Quarter: 2022Q3

REPORT INFORMATION
  Report Type: Spontaneous
  Country: BE (occurrence: BE)
  Receive Date: 20220411
  Receipt Date: 20220926
  Transmission Date: 20221027
  Serious: Yes (Other)
  Sender: FDA-Public Use
  Company Number: BE-BRISTOL-MYERS SQUIBB COMPANY-2022-016035

PATIENT
  Age: 55 Year
  Sex: Female

DRUGS (6)
  1. OPDIVO [Suspect]
     Active Substance: NIVOLUMAB
     Indication: Clear cell renal cell carcinoma
     Dosage: FREQUENCY: Q 28 DAYS
     Route: 042
     Dates: start: 20201021, end: 20220224
  2. OPDIVO [Suspect]
     Active Substance: NIVOLUMAB
     Indication: Metastases to lung
     Route: 065
     Dates: start: 20210119
  3. YERVOY [Suspect]
     Active Substance: IPILIMUMAB
     Indication: Clear cell renal cell carcinoma
     Route: 065
     Dates: start: 20201021
  4. YERVOY [Suspect]
     Active Substance: IPILIMUMAB
     Indication: Metastases to lung
  5. LERCANIDIPINE [Concomitant]
     Active Substance: LERCANIDIPINE
     Indication: Hypertension
     Route: 048
  6. D-Pearls [Concomitant]
     Indication: Hypovitaminosis
     Route: 048

REACTIONS (5)
  - Optic neuritis [Unknown]
  - Papilloedema [Recovered/Resolved]
  - Arthralgia [Unknown]
  - Cortisol decreased [Unknown]
  - Blood corticotrophin [Unknown]

NARRATIVE: CASE EVENT DATE: 20210201
